FAERS Safety Report 19410595 (Version 1)
Quarter: 2021Q2

REPORT INFORMATION
  Report Type: Spontaneous
  Country: US (occurrence: US)
  Receive Date: 20210611
  Receipt Date: 20210611
  Transmission Date: 20210717
  Serious: Yes (Hospitalization)
  Sender: FDA-Public Use
  Company Number: None

PATIENT
  Sex: Male

DRUGS (6)
  1. TEMOZOLOMIDE 180 MG [Suspect]
     Active Substance: TEMOZOLOMIDE
     Indication: BRAIN NEOPLASM MALIGNANT
     Dosage: ?          OTHER FREQUENCY:QD X 5 DAYS;?
     Route: 048
     Dates: start: 20191002
  2. LISINOPRIL. [Concomitant]
     Active Substance: LISINOPRIL
  3. PHENTERMINE. [Concomitant]
     Active Substance: PHENTERMINE
  4. HYDROCO/APAP [Concomitant]
     Active Substance: ACETAMINOPHEN\HYDROCODONE
  5. DILTIAZEM. [Concomitant]
     Active Substance: DILTIAZEM
  6. MELOXICAM. [Concomitant]
     Active Substance: MELOXICAM

REACTIONS (1)
  - Pulmonary embolism [None]
